APPROVED DRUG PRODUCT: ZILEUTON
Active Ingredient: ZILEUTON
Strength: 600MG
Dosage Form/Route: TABLET, EXTENDED RELEASE;ORAL
Application: A211972 | Product #001
Applicant: LUPIN LTD
Approved: Nov 5, 2019 | RLD: No | RS: No | Type: DISCN